FAERS Safety Report 6547285-3 (Version None)
Quarter: 2010Q1

REPORT INFORMATION
  Report Type: 
  Country: None (occurrence: None)
  Receive Date: 20100122
  Receipt Date: 20091023
  Transmission Date: 20100710
  Serious: Yes (Hospitalization, Disabling)
  Sender: FDA-Public Use
  Company Number: IT-CELGENEUS-083-C5013-09090147

PATIENT
  Sex: Male
  Weight: 74 kg

DRUGS (5)
  1. CC-5013 [Suspect]
     Indication: MANTLE CELL LYMPHOMA
     Route: 048
     Dates: start: 20090825, end: 20090830
  2. LEVOFLOXACIN [Concomitant]
     Indication: INFECTION PROPHYLAXIS
     Route: 048
     Dates: start: 20090828, end: 20090901
  3. ENOXAPARIN SODIUM [Concomitant]
     Route: 058
     Dates: start: 20090825
  4. ALLOPURINOL [Concomitant]
     Indication: PROPHYLAXIS
     Route: 048
     Dates: start: 20090825
  5. FUROSEMIDE + SPIRONOLACTONE [Concomitant]
     Indication: OEDEMA
     Dosage: 25 + 37 MG
     Route: 048
     Dates: start: 20090911

REACTIONS (6)
  - CARDIAC FAILURE [None]
  - FATIGUE [None]
  - OEDEMA [None]
  - PYREXIA [None]
  - RENAL FAILURE [None]
  - TUMOUR LYSIS SYNDROME [None]
